FAERS Safety Report 23771765 (Version 4)
Quarter: 2024Q4

REPORT INFORMATION
  Report Type: Spontaneous
  Country: FR (occurrence: FR)
  Receive Date: 20240423
  Receipt Date: 20241126
  Transmission Date: 20250115
  Serious: Yes (Other)
  Sender: CELLTRION
  Company Number: FR-CELLTRION INC.-2024FR008951

PATIENT

DRUGS (8)
  1. INFLIXIMAB [Suspect]
     Active Substance: INFLIXIMAB
     Indication: Spondyloarthropathy
     Dosage: UNK
     Route: 042
  2. INFLIXIMAB [Suspect]
     Active Substance: INFLIXIMAB
     Indication: Whipple^s disease
     Dosage: UNK
     Route: 065
  3. INFLIXIMAB [Suspect]
     Active Substance: INFLIXIMAB
     Indication: Spondyloarthropathy
  4. REMICADE [Suspect]
     Active Substance: INFLIXIMAB
     Indication: Whipple^s disease
     Route: 042
  5. ADALIMUMAB [Suspect]
     Active Substance: ADALIMUMAB
     Indication: Spondyloarthropathy
     Dosage: ADDITIONAL INFORMATION ON DRUG (FREE TEXT): DOSAGE1: UNIT=NOT AVAILABLE
     Route: 065
  6. ADALIMUMAB [Suspect]
     Active Substance: ADALIMUMAB
     Indication: Whipple^s disease
     Dosage: UNK
     Route: 065
  7. ETANERCEPT [Concomitant]
     Active Substance: ETANERCEPT
     Indication: Spondyloarthropathy
     Dosage: UNK
     Route: 065
  8. ETANERCEPT [Concomitant]
     Active Substance: ETANERCEPT
     Indication: Whipple^s disease
     Dosage: UNK
     Route: 065

REACTIONS (18)
  - Immune recovery uveitis [Recovering/Resolving]
  - Macular oedema [Unknown]
  - Uveitis [Unknown]
  - Cataract [Unknown]
  - Vitritis [Recovering/Resolving]
  - Immune reconstitution inflammatory syndrome [Recovering/Resolving]
  - Chorioretinitis [Unknown]
  - Blindness [Unknown]
  - Optic neuritis [Unknown]
  - Hepatitis B [Unknown]
  - Whipple^s disease [Unknown]
  - Vitreous floaters [Recovering/Resolving]
  - Intraocular pressure increased [Unknown]
  - Vitreous disorder [Unknown]
  - Microcytic anaemia [Unknown]
  - Contraindication to medical treatment [Unknown]
  - Drug ineffective for unapproved indication [Unknown]
  - Off label use [Unknown]
